FAERS Safety Report 6024148-3 (Version None)
Quarter: 2008Q4

REPORT INFORMATION
  Report Type: 
  Country: None (occurrence: None)
  Receive Date: 20081230
  Receipt Date: 20081228
  Transmission Date: 20090506
  Serious: Yes (Hospitalization)
  Sender: FDA-Public Use
  Company Number: MX-ABBOTT-08P-107-0490033-00

PATIENT
  Sex: Female
  Weight: 64 kg

DRUGS (1)
  1. HUMIRA [Suspect]
     Indication: DRUG USE FOR UNKNOWN INDICATION
     Route: 058
     Dates: start: 20081016, end: 20081115

REACTIONS (4)
  - ENTEROCOLITIS INFECTIOUS [None]
  - INFLAMMATION [None]
  - LOWER GASTROINTESTINAL HAEMORRHAGE [None]
  - VOMITING [None]
